FAERS Safety Report 5181902-8 (Version None)
Quarter: 2006Q4

REPORT INFORMATION
  Report Type: 
  Country: None (occurrence: None)
  Receive Date: 20061220
  Receipt Date: 20060324
  Transmission Date: 20070319
  Serious: No
  Sender: FDA-Public Use
  Company Number: US-GLAXOSMITHKLINE-A0598895A

PATIENT
  Age: 68 Year
  Sex: Female

DRUGS (2)
  1. COMMIT [Suspect]
     Dates: start: 20060321
  2. LEVOTHYROXINE SODIUM [Concomitant]

REACTIONS (6)
  - EUPHORIC MOOD [None]
  - HEART RATE INCREASED [None]
  - LOGORRHOEA [None]
  - MOOD ALTERED [None]
  - NERVOUSNESS [None]
  - RESTLESSNESS [None]
